FAERS Safety Report 23090125 (Version 2)
Quarter: 2023Q4

REPORT INFORMATION
  Report Type: Spontaneous
  Country: CA (occurrence: CA)
  Receive Date: 20231020
  Receipt Date: 20231214
  Transmission Date: 20240110
  Serious: Yes (Other)
  Sender: FDA-Public Use
  Company Number: CA-PFIZER INC-202300332437

PATIENT
  Age: 20 Year
  Sex: Female

DRUGS (8)
  1. ABRILADA [Suspect]
     Active Substance: ADALIMUMAB-AFZB
     Indication: Crohn^s disease
     Dosage: 80 MG, WEEKLY (PREFILLED PEN)
     Route: 058
     Dates: start: 20220512, end: 2023
  2. ABRILADA [Suspect]
     Active Substance: ADALIMUMAB-AFZB
     Dosage: 1 DF (80 MG WEEK 1 / 40 MG WEEK 2PREFILLED PEN)
     Route: 058
     Dates: start: 2023
  3. ABRILADA [Suspect]
     Active Substance: ADALIMUMAB-AFZB
     Dosage: 40 MG, WEEKLY (PREFILLED PEN)
     Route: 058
     Dates: start: 2023
  4. ABRILADA [Suspect]
     Active Substance: ADALIMUMAB-AFZB
     Dosage: 40 MG, WEEKLY (PREFILLED PEN)
     Route: 058
     Dates: start: 20231009
  5. ABRILADA [Suspect]
     Active Substance: ADALIMUMAB-AFZB
     Dosage: 40 MG, WEEKLY (PREFILLED PEN)
     Route: 058
     Dates: start: 20231013
  6. MIN-OVRAL [Concomitant]
     Dosage: 1 DF (DOSAGE UNKNOWN)
     Route: 065
  7. PENTASA [Concomitant]
     Active Substance: MESALAMINE
     Dosage: 1 DROP (DOSAGE UNKNOWN)
     Route: 065
     Dates: start: 2021
  8. PREVACID [Concomitant]
     Active Substance: LANSOPRAZOLE
     Dosage: 1 DF (DOSAGE UNKNOWN)
     Route: 065

REACTIONS (3)
  - Vein rupture [Recovered/Resolved]
  - Injection site pain [Recovered/Resolved]
  - Injection site induration [Recovered/Resolved]

NARRATIVE: CASE EVENT DATE: 20231013
